FAERS Safety Report 6515929-8 (Version None)
Quarter: 2009Q4

REPORT INFORMATION
  Report Type: 
  Country: None (occurrence: None)
  Receive Date: 20091223
  Receipt Date: 20090121
  Transmission Date: 20100525
  Serious: No
  Sender: FDA-Public Use
  Company Number: US-ABBOTT-09P-163-0499388-00

PATIENT
  Sex: Male
  Weight: 36 kg

DRUGS (2)
  1. LUPRON DEPOT [Suspect]
     Indication: PRECOCIOUS PUBERTY
     Dates: start: 20080101, end: 20081201
  2. LUPRON DEPOT [Suspect]

REACTIONS (1)
  - INCORRECT DRUG DOSAGE FORM ADMINISTERED [None]
